FAERS Safety Report 15277779 (Version 1)
Quarter: 2018Q3

REPORT INFORMATION
  Report Type: Spontaneous
  Country: US (occurrence: US)
  Receive Date: 20180730
  Receipt Date: 20180730
  Transmission Date: 20181010
  Serious: Yes (Hospitalization)
  Sender: FDA-Public Use
  Company Number: None

PATIENT
  Age: 72 Year
  Sex: Male
  Weight: 67.4 kg

DRUGS (3)
  1. CISPLATIN. [Suspect]
     Active Substance: CISPLATIN
     Dates: start: 20180718
  2. CISPLATIN. [Suspect]
     Active Substance: CISPLATIN
     Indication: HYPOPHARYNGEAL CANCER
     Dosage: 6/618, 6/27 AND 7/18/18
     Route: 042
     Dates: start: 20180606
  3. CISPLATIN. [Suspect]
     Active Substance: CISPLATIN
     Dates: start: 20180627

REACTIONS (3)
  - Cough [None]
  - Throat irritation [None]
  - Dyspnoea [None]

NARRATIVE: CASE EVENT DATE: 20180718
